FAERS Safety Report 11535213 (Version 1)
Quarter: 2015Q3

REPORT INFORMATION
  Report Type: Spontaneous
  Country: US (occurrence: None)
  Receive Date: 20150921
  Receipt Date: 20150921
  Transmission Date: 20151125
  Serious: Yes (Hospitalization)
  Sender: FDA-Public Use
  Company Number: None

PATIENT
  Sex: Male
  Weight: 137.26 kg

DRUGS (2)
  1. BYETTA [Suspect]
     Active Substance: EXENATIDE
     Dosage: 10MGC DAILY
     Dates: start: 201505
  2. INVOKANA [Suspect]
     Active Substance: CANAGLIFLOZIN
     Dates: start: 201505

REACTIONS (11)
  - Diabetic ketoacidosis [None]
  - Oesophagitis [None]
  - Nausea [None]
  - Vomiting [None]
  - Impaired gastric emptying [None]
  - Diastolic dysfunction [None]
  - Hypertension [None]
  - Gastric ulcer [None]
  - Acute kidney injury [None]
  - Dehydration [None]
  - Aortic dilatation [None]

NARRATIVE: CASE EVENT DATE: 20150703
